FAERS Safety Report 17325907 (Version 4)
Quarter: 2020Q1

REPORT INFORMATION
  Report Type: Spontaneous
  Country: US (occurrence: US)
  Receive Date: 20200127
  Receipt Date: 20200305
  Transmission Date: 20200409
  Serious: Yes (Disabling)
  Sender: FDA-Public Use
  Company Number: US-PFIZER INC-2020033587

PATIENT
  Age: 60 Year
  Sex: Male
  Weight: 93.88 kg

DRUGS (2)
  1. CADUET [Suspect]
     Active Substance: AMLODIPINE BESYLATE\ATORVASTATIN CALCIUM
     Dosage: 5/20 (UNIT KNOWN), ONCE DAILY
     Dates: start: 2017
  2. LEVETIRACETAM. [Concomitant]
     Active Substance: LEVETIRACETAM
     Dosage: 750 MG, UNK

REACTIONS (3)
  - Confusional state [Recovered/Resolved]
  - Malaise [Recovered/Resolved]
  - Nervousness [Recovered/Resolved]
